FAERS Safety Report 16207498 (Version 7)
Quarter: 2021Q3

REPORT INFORMATION
  Report Type: Spontaneous
  Country: US (occurrence: US)
  Receive Date: 20190417
  Receipt Date: 20210727
  Transmission Date: 20211014
  Serious: No
  Sender: FDA-Public Use
  Company Number: US-PFIZER INC-2019162340

PATIENT
  Age: 13 Year
  Sex: Male
  Weight: 45.35 kg

DRUGS (2)
  1. GENOTROPIN [Suspect]
     Active Substance: SOMATROPIN
     Indication: GROWTH HORMONE DEFICIENCY
     Dosage: 1.6 MG, DAILY
     Route: 058
     Dates: start: 20190321
  2. GENOTROPIN [Suspect]
     Active Substance: SOMATROPIN
     Indication: HYPOPITUITARISM
     Dosage: 1.6 MG, DAILY
     Route: 058
     Dates: start: 20190201, end: 2019

REACTIONS (6)
  - Painful respiration [Unknown]
  - Expired device used [Unknown]
  - Device power source issue [Unknown]
  - Musculoskeletal chest pain [Unknown]
  - Headache [Unknown]
  - Drug dose omission by device [Recovered/Resolved]

NARRATIVE: CASE EVENT DATE: 201904
